FAERS Safety Report 13837542 (Version 1)
Quarter: 2017Q3

REPORT INFORMATION
  Report Type: Spontaneous
  Country: JP (occurrence: JP)
  Receive Date: 20170804
  Receipt Date: 20170804
  Transmission Date: 20171127
  Serious: Yes (Hospitalization, Other)
  Sender: FDA-Public Use
  Company Number: JP-009507513-1708JPN002265

PATIENT
  Age: 26 Year
  Sex: Female

DRUGS (8)
  1. REFLEX [Suspect]
     Active Substance: MIRTAZAPINE
     Indication: DEPRESSION
     Dosage: 7.5 MG, 1X/DAY
     Route: 048
     Dates: start: 20161101, end: 20170304
  2. REFLEX [Suspect]
     Active Substance: MIRTAZAPINE
     Indication: INSOMNIA
  3. REFLEX [Suspect]
     Active Substance: MIRTAZAPINE
     Indication: INSOMNIA
     Dosage: 1 DF, UNK
     Route: 048
     Dates: start: 20170410
  4. LUNESTA [Suspect]
     Active Substance: ESZOPICLONE
     Indication: INSOMNIA
     Dosage: 1 MG, AS NEEDED
     Route: 048
     Dates: start: 20161014, end: 20170304
  5. REFLEX [Suspect]
     Active Substance: MIRTAZAPINE
     Indication: DEPRESSION
  6. JZOLOFT [Suspect]
     Active Substance: SERTRALINE HYDROCHLORIDE
     Indication: DEPRESSION
     Dosage: 25 MG, TID
     Dates: start: 20161014, end: 20170220
  7. JZOLOFT [Suspect]
     Active Substance: SERTRALINE HYDROCHLORIDE
     Dosage: 25 MG, QID
     Route: 048
     Dates: start: 20170121, end: 20170304
  8. RIZE [Suspect]
     Active Substance: CLOTIAZEPAM
     Indication: ANXIETY
     Dosage: 5 MG, BID
     Route: 048
     Dates: start: 20161014, end: 20170304

REACTIONS (14)
  - Depression [Unknown]
  - Intentional overdose [Recovered/Resolved]
  - Insomnia [Unknown]
  - Irritability [Unknown]
  - Dizziness [Unknown]
  - Increased appetite [Unknown]
  - Suicidal ideation [Unknown]
  - Fatigue [Unknown]
  - Nausea [Unknown]
  - Somnolence [Unknown]
  - Chronic gastritis [Unknown]
  - Amnesia [Unknown]
  - Condition aggravated [Unknown]
  - Thinking abnormal [Unknown]

NARRATIVE: CASE EVENT DATE: 20161114
